FAERS Safety Report 26203322 (Version 1)
Quarter: 2025Q4

REPORT INFORMATION
  Report Type: Spontaneous
  Country: US (occurrence: None)
  Receive Date: 20251223
  Receipt Date: 20251223
  Transmission Date: 20260117
  Serious: Yes (Other)
  Sender: FDA-CTU
  Company Number: None

PATIENT
  Age: 61 Year
  Sex: Female
  Weight: 64.8 kg

DRUGS (2)
  1. VIZZ [Suspect]
     Active Substance: ACECLIDINE HYDROCHLORIDE
     Indication: Myopia
     Dosage: OTHER QUANTITY : 2 DROP(S);
     Route: 047
  2. HRT medicine [Concomitant]

REACTIONS (1)
  - Vitreous detachment [None]

NARRATIVE: CASE EVENT DATE: 20251205
